FAERS Safety Report 25648867 (Version 1)
Quarter: 2025Q3

REPORT INFORMATION
  Report Type: Spontaneous
  Country: US (occurrence: US)
  Receive Date: 20250806
  Receipt Date: 20250806
  Transmission Date: 20251020
  Serious: No
  Sender: LEO PHARM
  Company Number: US-LEO Pharma-381877

PATIENT
  Age: 59 Year
  Sex: Female
  Weight: 78 kg

DRUGS (2)
  1. ADBRY [Suspect]
     Active Substance: TRALOKINUMAB-LDRM
     Indication: Dermatitis atopic
  2. NEMLUVIO [Concomitant]
     Active Substance: NEMOLIZUMAB-ILTO
     Indication: Product used for unknown indication

REACTIONS (1)
  - Surgery [Unknown]

NARRATIVE: CASE EVENT DATE: 20250723
